FAERS Safety Report 12396281 (Version 3)
Quarter: 2016Q2

REPORT INFORMATION
  Report Type: Report from Study
  Country: CN (occurrence: CN)
  Receive Date: 20160524
  Receipt Date: 20160610
  Transmission Date: 20160815
  Serious: Yes (Death)
  Sender: FDA-Public Use
  Company Number: CN-ROCHE-1761718

PATIENT
  Age: 48 Year
  Sex: Female
  Weight: 61 kg

DRUGS (2)
  1. TRASTUZUMAB [Suspect]
     Active Substance: TRASTUZUMAB
     Indication: GASTRIC CANCER
     Route: 042
     Dates: start: 20140604
  2. PACLITAXEL. [Suspect]
     Active Substance: PACLITAXEL
     Indication: GASTRIC CANCER
     Route: 042
     Dates: start: 20140527, end: 20140805

REACTIONS (3)
  - Dyspnoea [Unknown]
  - Cough [Not Recovered/Not Resolved]
  - Pulmonary fibrosis [Fatal]

NARRATIVE: CASE EVENT DATE: 20140806
